FAERS Safety Report 9282470 (Version 1)
Quarter: 2013Q2

REPORT INFORMATION
  Report Type: Spontaneous
  Country: US (occurrence: None)
  Receive Date: 20130509
  Receipt Date: 20130509
  Transmission Date: 20140414
  Serious: No
  Sender: FDA-Public Use
  Company Number: None

PATIENT
  Age: 72 Year
  Sex: Male
  Weight: 120.2 kg

DRUGS (1)
  1. METFORMIN HCL [Suspect]
     Indication: DIABETES MELLITUS
     Route: 048
     Dates: start: 20050310, end: 20130508

REACTIONS (8)
  - Product odour abnormal [None]
  - Joint swelling [None]
  - Erythema [None]
  - Arthralgia [None]
  - Burning sensation [None]
  - Product quality issue [None]
  - Local swelling [None]
  - Pain in extremity [None]
